FAERS Safety Report 21154689 (Version 1)
Quarter: 2022Q3

REPORT INFORMATION
  Report Type: Report from Study
  Country: US (occurrence: US)
  Receive Date: 20220801
  Receipt Date: 20220801
  Transmission Date: 20221027
  Serious: Yes (Hospitalization, Other)
  Sender: FDA-Public Use
  Company Number: US-AUROBINDO-AUR-APL-2022-030246

PATIENT
  Sex: Male

DRUGS (8)
  1. OXALIPLATIN [Suspect]
     Active Substance: OXALIPLATIN
     Indication: Neoplasm malignant
     Dosage: UNK, BAG 1 CONTAINING 10% OF THE TOTAL DOSE IN 100ML
     Route: 042
  2. OXALIPLATIN [Suspect]
     Active Substance: OXALIPLATIN
     Dosage: UNK, BAG 2 CONTAINING 90% OF THE TOTAL DOSE IN 250ML.
     Route: 042
  3. OXALIPLATIN [Suspect]
     Active Substance: OXALIPLATIN
     Dosage: UNK, 10ML OF BAG 1 (1% OF THE TOTAL DOSE)
     Route: 042
  4. OXALIPLATIN [Suspect]
     Active Substance: OXALIPLATIN
     Dosage: UNK, 90ML OF BAG 1 (9% OF THE TOTAL DOSE) IN NEXT 2H
     Route: 042
  5. OXALIPLATIN [Suspect]
     Active Substance: OXALIPLATIN
     Dosage: UNK, 250ML OF BAG 2 (90% OF TOTAL DOSE) OVER 3H
     Route: 042
  6. DEXAMETHASONE [Concomitant]
     Active Substance: DEXAMETHASONE
     Indication: Premedication
     Dosage: UNK
     Route: 065
  7. DIPHENHYDRAMINE [Concomitant]
     Active Substance: DIPHENHYDRAMINE
     Indication: Premedication
  8. FAMOTIDINE [Concomitant]
     Active Substance: FAMOTIDINE
     Indication: Premedication
     Dosage: UNK
     Route: 065

REACTIONS (3)
  - Respiratory failure [Unknown]
  - Bronchospasm [Unknown]
  - Hypersensitivity [Unknown]
